FAERS Safety Report 10782615 (Version 6)
Quarter: 2016Q1

REPORT INFORMATION
  Report Type: Spontaneous
  Country: US (occurrence: US)
  Receive Date: 20150210
  Receipt Date: 20160203
  Transmission Date: 20160525
  Serious: Yes (Other)
  Sender: FDA-Public Use
  Company Number: US-PFIZER INC-2014363474

PATIENT
  Age: 70 Year
  Sex: Female
  Weight: 47 kg

DRUGS (10)
  1. SUTENT [Suspect]
     Active Substance: SUNITINIB MALATE
     Indication: RENAL CANCER METASTATIC
     Dosage: 50 MG, DAILY, 4 WEEKS ON/ 2 WEEKS OFF
     Route: 048
     Dates: start: 20141205
  2. AMBINE [Concomitant]
     Indication: SLEEP DISORDER
     Dosage: 10 MG, 1X/DAY, 1 QHS (EVERY NIGHT AT BEDTIME) PRN
     Route: 048
  3. COREG [Concomitant]
     Active Substance: CARVEDILOL
     Dosage: 25 MG, 2X/DAY
     Route: 048
  4. OXYCODONE HYDROCHLORIDE. [Concomitant]
     Active Substance: OXYCODONE HYDROCHLORIDE
     Indication: PAIN
     Dosage: 5 MG, 1 EVERY (Q) 4-6 HOURS (H) PRN
     Route: 048
     Dates: start: 20140618
  5. ZEMPLAR [Concomitant]
     Active Substance: PARICALCITOL
     Dosage: 1 UG, DAILY
     Route: 048
  6. TYLENOL [Concomitant]
     Active Substance: ACETAMINOPHEN
     Dosage: 500 MG, 2X/DAY (TAKE 2 PRN)
     Route: 048
  7. HYDRALAZINE HYDROCHLORIDE. [Concomitant]
     Active Substance: HYDRALAZINE HYDROCHLORIDE
     Dosage: 25 MG, 3X/DAY
     Route: 048
  8. OXYCONTIN [Concomitant]
     Active Substance: OXYCODONE HYDROCHLORIDE
     Dosage: 20 MG, 2X/DAY, ONE TABLET EVERY 12 HOURS (Q12H)
     Route: 048
     Dates: start: 20140626
  9. SUTENT [Suspect]
     Active Substance: SUNITINIB MALATE
     Dosage: 12.5 MG, DAILY, 4 WEEKS ON/ 2 WEEKS OFF
     Route: 048
  10. ALLOPURINOL. [Concomitant]
     Active Substance: ALLOPURINOL
     Dosage: 100 MG, 2X/DAY
     Route: 048

REACTIONS (5)
  - Weight decreased [Recovering/Resolving]
  - Rectal haemorrhage [Unknown]
  - Constipation [Unknown]
  - Proctalgia [Unknown]
  - Fatigue [Unknown]
